FAERS Safety Report 6549333-3 (Version None)
Quarter: 2010Q1

REPORT INFORMATION
  Report Type: 
  Country: None (occurrence: None)
  Receive Date: 20100125
  Receipt Date: 20100112
  Transmission Date: 20100710
  Serious: Yes (Hospitalization, Other)
  Sender: FDA-Public Use
  Company Number: PHHY2010KR00532

PATIENT
  Sex: Female

DRUGS (1)
  1. ACLASTA [Suspect]
     Indication: OSTEOPOROSIS
     Dosage: 5 MG
     Route: 042
     Dates: start: 20090605

REACTIONS (6)
  - BACK PAIN [None]
  - DYSSTASIA [None]
  - EXCORIATION [None]
  - FALL [None]
  - SPINAL FRACTURE [None]
  - SPINAL OPERATION [None]
